FAERS Safety Report 21392005 (Version 3)
Quarter: 2023Q1

REPORT INFORMATION
  Report Type: Report from Study
  Country: FR (occurrence: FR)
  Receive Date: 20220929
  Receipt Date: 20230310
  Transmission Date: 20230418
  Serious: Yes (Death, Other)
  Sender: FDA-Public Use
  Company Number: FR-NOVARTISPH-NVSC2022FR217682

PATIENT
  Sex: Male

DRUGS (1)
  1. PLUVICTO [Suspect]
     Active Substance: LUTETIUM LU-177 VIPIVOTIDE TETRAXETAN
     Indication: Prostate cancer
     Dosage: 7167 MBQ, ONCE/SINGLE
     Route: 065
     Dates: start: 20220811, end: 20220811

REACTIONS (5)
  - Metastases to bone [Fatal]
  - Aplasia [Fatal]
  - Haematotoxicity [Unknown]
  - Thrombocytopenia [Unknown]
  - Anaemia [Unknown]
